FAERS Safety Report 5215858-6 (Version None)
Quarter: 2007Q1

REPORT INFORMATION
  Report Type: 
  Country: None (occurrence: None)
  Receive Date: 20070123
  Receipt Date: 20070115
  Transmission Date: 20070707
  Serious: Yes (Other)
  Sender: FDA-Public Use
  Company Number: NL-GLAXOSMITHKLINE-B0450909A

PATIENT

DRUGS (1)
  1. PAROXETINE HCL [Suspect]
     Indication: DRUG USE FOR UNKNOWN INDICATION
     Dosage: 40MG PER DAY
     Route: 065
     Dates: start: 20011001, end: 20040701

REACTIONS (9)
  - CONFUSIONAL STATE [None]
  - DRUG DEPENDENCE [None]
  - DRY MOUTH [None]
  - DYSKINESIA [None]
  - PYREXIA [None]
  - RESTLESSNESS [None]
  - SELF MUTILATION [None]
  - SKIN REACTION [None]
  - SUICIDAL IDEATION [None]
